FAERS Safety Report 8453786-3 (Version None)
Quarter: 2012Q2

REPORT INFORMATION
  Report Type: 
  Country: None (occurrence: None)
  Receive Date: 20120620
  Receipt Date: 20120612
  Transmission Date: 20120825
  Serious: Yes (Hospitalization)
  Sender: FDA-Public Use
  Company Number: ZA-ELI_LILLY_AND_COMPANY-ZA201206004678

PATIENT
  Sex: Female

DRUGS (3)
  1. HUMULIN 70/30 [Suspect]
     Dosage: 12 U, EACH EVENING
     Dates: start: 20120601
  2. HUMULIN 70/30 [Suspect]
     Dosage: 24 U, EACH MORNING
     Dates: start: 20120601
  3. HUMULIN 70/30 [Suspect]
     Indication: DIABETES MELLITUS
     Dosage: UNK UNK, UNKNOWN
     Dates: start: 20110601, end: 20120601

REACTIONS (1)
  - DIABETES MELLITUS INADEQUATE CONTROL [None]
